FAERS Safety Report 5905138-5 (Version None)
Quarter: 2008Q3

REPORT INFORMATION
  Report Type: 
  Country: None (occurrence: None)
  Receive Date: 20080909
  Receipt Date: 20071228
  Transmission Date: 20090109
  Serious: Yes (Death)
  Sender: FDA-Public Use
  Company Number: 163-20785-07110295

PATIENT
  Age: 75 Year
  Sex: Male

DRUGS (2)
  1. THALOMID [Suspect]
     Indication: MULTIPLE MYELOMA
     Dosage: 50MG-100MG,DAILY,ORAL; 100 MG,2 IN 1 D, ORAL
     Route: 048
     Dates: start: 20060620, end: 20060901
  2. THALOMID [Suspect]
     Indication: MULTIPLE MYELOMA
     Dosage: 50MG-100MG,DAILY,ORAL; 100 MG,2 IN 1 D, ORAL
     Route: 048
     Dates: start: 20060921, end: 20070901

REACTIONS (1)
  - MULTIPLE MYELOMA [None]
